FAERS Safety Report 25677383 (Version 1)
Quarter: 2025Q3

REPORT INFORMATION
  Report Type: Spontaneous
  Country: US (occurrence: US)
  Receive Date: 20250813
  Receipt Date: 20250813
  Transmission Date: 20251020
  Serious: Yes (Other)
  Sender: SANOFI AVENTIS
  Company Number: US-SA-2025SA235055

PATIENT

DRUGS (1)
  1. LANTUS SOLOSTAR [Suspect]
     Active Substance: INSULIN GLARGINE
     Indication: Blood glucose increased
     Dosage: BID
     Route: 058

REACTIONS (3)
  - Neuropathy peripheral [Unknown]
  - Activities of daily living decreased [Unknown]
  - Inappropriate schedule of product administration [Unknown]
